FAERS Safety Report 10084145 (Version 2)
Quarter: 2014Q2

REPORT INFORMATION
  Report Type: Report from Study
  Country: US (occurrence: US)
  Receive Date: 20140417
  Receipt Date: 20140417
  Transmission Date: 20141212
  Serious: Yes (Life-Threatening, Hospitalization, Other)
  Sender: FDA-Public Use
  Company Number: US-SA-CLOF-1002324

PATIENT
  Age: 20 Year
  Sex: Male
  Weight: 115 kg

DRUGS (16)
  1. CLOFARABINE [Suspect]
     Indication: LYMPHOCYTIC LEUKAEMIA
     Dosage: 30 MG/M2, ON DAYS 29-33
     Route: 042
     Dates: start: 20120529, end: 20120602
  2. CYCLOPHOSPHAMIDE [Suspect]
     Indication: LYMPHOCYTIC LEUKAEMIA
     Dosage: 1000 MG/M2, UNK
     Route: 042
  3. CYCLOPHOSPHAMIDE [Suspect]
     Indication: LYMPHOCYTIC LEUKAEMIA
     Dosage: 440 MG/M2, QD
     Route: 042
     Dates: start: 20120529, end: 20120602
  4. CYTARABINE [Suspect]
     Indication: LYMPHOCYTIC LEUKAEMIA
     Dosage: 70 MG, UNK
     Route: 037
     Dates: start: 20120318
  5. CYTARABINE [Suspect]
     Indication: LYMPHOCYTIC LEUKAEMIA
     Dosage: 75 MG/M2, ON DAYS 1-4 AND 8-11
     Route: 042
     Dates: end: 20120503
  6. DAUNORUBICIN [Suspect]
     Indication: LYMPHOCYTIC LEUKAEMIA
     Dosage: 25 MG/M2, ON DAYS 1,8, 15 AND 22
     Route: 042
     Dates: start: 20120318, end: 20120406
  7. ETOPOSIDE [Suspect]
     Indication: LYMPHOCYTIC LEUKAEMIA
     Dosage: 1000 MG/M2, ON DAYS 29-33
     Route: 042
     Dates: start: 20120529, end: 20120602
  8. MERCAPTOPURINE [Suspect]
     Indication: LYMPHOCYTIC LEUKAEMIA
     Dosage: 60 MG/M2, UNK
     Route: 048
     Dates: end: 20120506
  9. METHOTREXATE [Suspect]
     Indication: LYMPHOCYTIC LEUKAEMIA
     Dosage: UNK, ON DAYS 8 AND 29
     Route: 037
     Dates: start: 20120318
  10. METHOTREXATE [Suspect]
     Indication: LYMPHOCYTIC LEUKAEMIA
     Dosage: UNK, ON DAYS 1, 8, 15 AND 22
     Route: 037
     Dates: end: 20120511
  11. PEGASPARGASE [Suspect]
     Indication: LYMPHOCYTIC LEUKAEMIA
     Dosage: 2500 IU/M2, ON DAY 4 DOSE:2500 INTERNATIONAL UNIT(S)/SQUARE METER
     Route: 042
     Dates: start: 20120318
  12. PEGASPARGASE [Suspect]
     Indication: LYMPHOCYTIC LEUKAEMIA
     Dosage: 2500 IU/M2, ON DAY 15 DOSE:2500 INTERNATIONAL UNIT(S)/SQUARE METER
     Route: 042
     Dates: end: 20120507
  13. PREDNISONE ACETATE [Suspect]
     Indication: LYMPHOCYTIC LEUKAEMIA
     Dosage: 30 MG/M2, BID, ON DAYS 1-28
     Route: 048
     Dates: start: 20120318, end: 20120413
  14. VINCRISTINE SULFATE [Suspect]
     Indication: LYMPHOCYTIC LEUKAEMIA
     Dosage: 1.5 MG/M2, ON DAYS 1,8,15 + 22
     Route: 042
     Dates: start: 20120318
  15. VINCRISTINE SULFATE [Suspect]
     Indication: LYMPHOCYTIC LEUKAEMIA
     Dosage: 1.5 MG/M2, ON DAYS 15 + 22
     Route: 042
  16. VINCRISTINE SULFATE [Suspect]
     Indication: LYMPHOCYTIC LEUKAEMIA
     Dosage: 1.5 MG/M2, ON DAYS 15 + 22
     Route: 042
     Dates: start: 20120529, end: 20120619

REACTIONS (26)
  - Colitis [Not Recovered/Not Resolved]
  - Rectal ulcer [Not Recovered/Not Resolved]
  - Proctitis [Recovered/Resolved]
  - Atelectasis [Unknown]
  - Ileus [Unknown]
  - Hypoxia [Recovered/Resolved]
  - Lipase increased [Recovered/Resolved]
  - Amylase increased [Recovered/Resolved]
  - Colitis [Not Recovered/Not Resolved]
  - Hypertension [Unknown]
  - Peripheral motor neuropathy [Unknown]
  - Peripheral sensory neuropathy [Unknown]
  - Pancreatitis [Not Recovered/Not Resolved]
  - Haematuria [Not Recovered/Not Resolved]
  - Proctalgia [Not Recovered/Not Resolved]
  - Diarrhoea [Not Recovered/Not Resolved]
  - Pain [Not Recovered/Not Resolved]
  - Pyrexia [Recovered/Resolved]
  - BK virus infection [Unknown]
  - Oedema peripheral [Not Recovered/Not Resolved]
  - Decreased appetite [Recovered/Resolved]
  - Abdominal pain [Recovered/Resolved]
  - Pseudomonas infection [Unknown]
  - Transaminases increased [Recovered/Resolved]
  - Hypertension [Unknown]
  - Hyperglycaemia [Recovered/Resolved]
